FAERS Safety Report 8389351-6 (Version None)
Quarter: 2012Q2

REPORT INFORMATION
  Report Type: 
  Country: None (occurrence: None)
  Receive Date: 20120528
  Receipt Date: 20120522
  Transmission Date: 20120825
  Serious: Yes (Other)
  Sender: FDA-Public Use
  Company Number: PHFR2012GB001580

PATIENT
  Sex: Male

DRUGS (2)
  1. CLOZARIL [Suspect]
     Indication: SCHIZOAFFECTIVE DISORDER
     Dosage: 400 MG, DAILY
     Route: 048
     Dates: start: 20060410
  2. LAMOTRIGINE [Concomitant]
     Indication: SCHIZOAFFECTIVE DISORDER
     Dosage: 400 MG, DAILY
     Route: 048
     Dates: start: 20100501

REACTIONS (3)
  - LYMPHOCYTE COUNT INCREASED [None]
  - DIFFERENTIAL WHITE BLOOD CELL COUNT ABNORMAL [None]
  - WHITE BLOOD CELL COUNT INCREASED [None]
